APPROVED DRUG PRODUCT: DOPAMINE HYDROCHLORIDE
Active Ingredient: DOPAMINE HYDROCHLORIDE
Strength: 80MG/ML
Dosage Form/Route: INJECTABLE;INJECTION
Application: A070559 | Product #001
Applicant: WARNER CHILCOTT DIV WARNER LAMBERT CO
Approved: Sep 20, 1985 | RLD: No | RS: No | Type: DISCN